FAERS Safety Report 25416713 (Version 2)
Quarter: 2025Q2

REPORT INFORMATION
  Report Type: Spontaneous
  Country: JP (occurrence: JP)
  Receive Date: 20250610
  Receipt Date: 20250619
  Transmission Date: 20250717
  Serious: No
  Sender: DAIICHI
  Company Number: JP-DSJP-DS-2025-146490-JPAA

PATIENT
  Age: 5 Decade
  Sex: Female

DRUGS (1)
  1. DATROWAY [Suspect]
     Active Substance: DATOPOTAMAB DERUXTECAN-DLNK
     Indication: Hormone receptor positive HER2 negative breast cancer
     Dosage: 6.0 MG/KG, ONCE EVERY 3 WK
     Route: 041
     Dates: start: 20250508

REACTIONS (3)
  - Dyspnoea [Unknown]
  - Rash [Recovering/Resolving]
  - Hypotension [Recovered/Resolved]

NARRATIVE: CASE EVENT DATE: 20250101
